FAERS Safety Report 12370438 (Version 1)
Quarter: 2016Q2

REPORT INFORMATION
  Report Type: Spontaneous
  Country: US (occurrence: None)
  Receive Date: 20160513
  Receipt Date: 20160513
  Transmission Date: 20160815
  Serious: No
  Sender: FDA-Public Use
  Company Number: None

PATIENT
  Age: 10 Year
  Sex: Male

DRUGS (1)
  1. VENOFER [Suspect]
     Active Substance: IRON SUCROSE
     Indication: GASTROINTESTINAL HAEMORRHAGE
     Dosage: 100MG OVER 2 HOURS EVERY WEEKS IV
     Route: 042
     Dates: start: 20160505

REACTIONS (3)
  - Heart rate increased [None]
  - Infusion related reaction [None]
  - Chills [None]

NARRATIVE: CASE EVENT DATE: 20160505
